FAERS Safety Report 5194522-6 (Version None)
Quarter: 2006Q4

REPORT INFORMATION
  Report Type: 
  Country: None (occurrence: None)
  Receive Date: 20061222
  Receipt Date: 20061218
  Transmission Date: 20070319
  Serious: Yes (Other)
  Sender: FDA-Public Use
  Company Number: 2005S1000849

PATIENT
  Age: 18 Day
  Sex: Female

DRUGS (9)
  1. NITRIC OXIDE [Suspect]
     Indication: LUNG DISORDER
     Dosage: 5 PPM; INH_GAS; INH; CONT INH
     Route: 055
     Dates: start: 20051014, end: 20051021
  2. NITRIC OXIDE [Suspect]
     Indication: PROPHYLAXIS
     Dosage: 5 PPM; INH_GAS; INH; CONT INH
     Route: 055
     Dates: start: 20051014, end: 20051021
  3. AMPICILLIN [Concomitant]
  4. CEFOTAXIME SODIUM [Concomitant]
  5. THEOPHYLLINE [Concomitant]
  6. INDOMETHACIN [Concomitant]
  7. INSULIN [Concomitant]
  8. VANCOMYCIN [Concomitant]
  9. AMIKACIN [Concomitant]

REACTIONS (1)
  - PATENT DUCTUS ARTERIOSUS [None]
